FAERS Safety Report 7059447-X (Version None)
Quarter: 2010Q4

REPORT INFORMATION
  Report Type: 
  Country: None (occurrence: None)
  Receive Date: 20101025
  Receipt Date: 20101015
  Transmission Date: 20110411
  Serious: Yes (Hospitalization, Other)
  Sender: FDA-Public Use
  Company Number: US-JNJFOC-20101004952

PATIENT
  Sex: Male
  Weight: 77.11 kg

DRUGS (10)
  1. REMICADE [Suspect]
     Indication: RHEUMATOID ARTHRITIS
     Route: 042
  2. REMICADE [Suspect]
     Route: 042
  3. ALLOPURINOL [Concomitant]
     Indication: GOUT
     Route: 048
  4. INDOMETHACIN [Concomitant]
     Route: 048
  5. FOLIC ACID [Concomitant]
     Route: 048
  6. VYTORIN [Concomitant]
     Dosage: 1 TABLET ONCE DAILY
     Route: 048
  7. FLUDROCORTISONE [Concomitant]
     Indication: ARTHRITIS
     Dosage: 1 TAB ONCE DAILY
     Route: 048
  8. RAMIPRIL [Concomitant]
     Indication: BLOOD PRESSURE
     Dosage: 1 TABLET ONCE DAILY
  9. PREDNISONE [Concomitant]
     Indication: ARTHRITIS
     Dosage: 1 TABLET ONCE DAILY
  10. METHOTREXATE [Concomitant]
     Indication: ARTHRITIS
     Dosage: 1 TABLET ONCE DAILY

REACTIONS (2)
  - ASTHENIA [None]
  - DYSSTASIA [None]
